FAERS Safety Report 8777570 (Version 1)
Quarter: 2012Q4

REPORT INFORMATION
  Report Type: 
  Country: US (occurrence: US)
  Receive Date: 20120912
  Receipt Date: 20120912
  Transmission Date: 20130627
  Serious: No
  Sender: FDA-Public Use
  Company Number: US-ASTRAZENECA-2012SE60945

PATIENT
  Sex: Male

DRUGS (4)
  1. SYMBICORT [Suspect]
     Indication: DYSPNOEA
     Route: 055
  2. PREDNISONE [Concomitant]
  3. ZITHROMYACIN [Concomitant]
  4. COUGH SYRUP [Concomitant]

REACTIONS (2)
  - Hyperhidrosis [Unknown]
  - Tachycardia [Unknown]
